FAERS Safety Report 7732874-0 (Version None)
Quarter: 2011Q3

REPORT INFORMATION
  Report Type: 
  Country: None (occurrence: None)
  Receive Date: 20110901
  Receipt Date: 20110817
  Transmission Date: 20111222
  Serious: Yes (Hospitalization, Other)
  Sender: FDA-Public Use
  Company Number: 2011MA008577

PATIENT
  Age: 4 Year
  Sex: Female

DRUGS (1)
  1. FERROUS SUL ELX [Suspect]
     Indication: OVERDOSE
     Dosage: 1X; PO
     Route: 048

REACTIONS (20)
  - POOR PERIPHERAL CIRCULATION [None]
  - TACHYPNOEA [None]
  - BLOOD IRON INCREASED [None]
  - PALLOR [None]
  - TOXICITY TO VARIOUS AGENTS [None]
  - SENSORY DISTURBANCE [None]
  - ENOPHTHALMOS [None]
  - HAEMATEMESIS [None]
  - HYPERGLYCAEMIA [None]
  - FEEDING TUBE COMPLICATION [None]
  - ACCIDENTAL DRUG INTAKE BY CHILD [None]
  - LEUKOCYTOSIS [None]
  - TRANSAMINASES INCREASED [None]
  - OVERDOSE [None]
  - TACHYCARDIA [None]
  - UPPER GASTROINTESTINAL HAEMORRHAGE [None]
  - MUCOSAL DISCOLOURATION [None]
  - METABOLIC ACIDOSIS [None]
  - ABDOMINAL PAIN UPPER [None]
  - HYPOKALAEMIA [None]
